FAERS Safety Report 23839697 (Version 3)
Quarter: 2024Q3

REPORT INFORMATION
  Report Type: Report from Study
  Country: US (occurrence: US)
  Receive Date: 20240510
  Receipt Date: 20240828
  Transmission Date: 20241017
  Serious: No
  Sender: ACADIA PHARMACEUTICALS
  Company Number: US-ACADIA PHARMACEUTICALS INC.-ACA-2024-PIM-001964

PATIENT
  Sex: Female

DRUGS (1)
  1. NUPLAZID [Suspect]
     Active Substance: PIMAVANSERIN TARTRATE
     Indication: Parkinson^s disease psychosis
     Dosage: 34 MILLIGRAM, QD
     Route: 048

REACTIONS (7)
  - Dysphemia [Not Recovered/Not Resolved]
  - Wrist fracture [Unknown]
  - Viral infection [Unknown]
  - Illness [Unknown]
  - Hallucination, visual [Not Recovered/Not Resolved]
  - Hallucination [Recovering/Resolving]
  - Hallucination [Unknown]
